FAERS Safety Report 11295261 (Version 1)
Quarter: 2015Q3

REPORT INFORMATION
  Report Type: Spontaneous
  Country: US (occurrence: None)
  Receive Date: 20150722
  Receipt Date: 20150722
  Transmission Date: 20151125
  Serious: No
  Sender: FDA-Public Use
  Company Number: None

PATIENT

DRUGS (1)
  1. ROPIVACAINE 0.2% 100ML PHARMEDIUM [Suspect]
     Active Substance: ROPIVACAINE
     Indication: EPIDURAL ANAESTHESIA

REACTIONS (2)
  - Product quality issue [None]
  - Staphylococcus test positive [None]

NARRATIVE: CASE EVENT DATE: 20150719
